FAERS Safety Report 21870640 (Version 1)
Quarter: 2023Q1

REPORT INFORMATION
  Report Type: Spontaneous
  Country: US (occurrence: US)
  Receive Date: 20230117
  Receipt Date: 20230117
  Transmission Date: 20230418
  Serious: Yes (Other)
  Sender: FDA-Public Use
  Company Number: US-009507513-2301USA004514

PATIENT
  Age: 27 Year
  Sex: Male

DRUGS (2)
  1. KEYTRUDA [Suspect]
     Active Substance: PEMBROLIZUMAB
     Indication: Mixed hepatocellular cholangiocarcinoma
     Dosage: 240 MILLIGRAM, Q3W
     Route: 042
  2. DOXORUBICIN [Concomitant]
     Active Substance: DOXORUBICIN
     Indication: Mixed hepatocellular cholangiocarcinoma
     Dosage: UNK

REACTIONS (2)
  - Hypothyroidism [Unknown]
  - Off label use [Unknown]
